FAERS Safety Report 5658355-6 (Version None)
Quarter: 2008Q1

REPORT INFORMATION
  Report Type: 
  Country: None (occurrence: None)
  Receive Date: 20080310
  Receipt Date: 20070205
  Transmission Date: 20080703
  Serious: No
  Sender: FDA-Public Use
  Company Number: US-BAYER-200710409BCC

PATIENT
  Age: 51 Year
  Sex: Female
  Weight: 82 kg

DRUGS (3)
  1. ALEVE [Suspect]
     Indication: EXOSTOSIS
     Route: 048
     Dates: start: 20061101, end: 20070203
  2. SYNTHROID [Concomitant]
  3. PROZAC [Concomitant]

REACTIONS (2)
  - FATIGUE [None]
  - RASH PRURITIC [None]
